FAERS Safety Report 7436195-5 (Version None)
Quarter: 2011Q2

REPORT INFORMATION
  Report Type: 
  Country: None (occurrence: None)
  Receive Date: 20110425
  Receipt Date: 20090216
  Transmission Date: 20111010
  Serious: Yes (Other)
  Sender: FDA-Public Use
  Company Number: DE-GENENTECH-317030

PATIENT
  Age: 75 Year

DRUGS (1)
  1. LUCENTIS [Suspect]
     Indication: MACULAR DEGENERATION
     Dosage: UNK
     Route: 031
     Dates: start: 20080919

REACTIONS (5)
  - BLISTER [None]
  - OCULAR HYPERAEMIA [None]
  - EYE INJURY [None]
  - EYE MOVEMENT DISORDER [None]
  - EYE PAIN [None]
